FAERS Safety Report 9786417 (Version 2)
Quarter: 2014Q1

REPORT INFORMATION
  Report Type: Spontaneous
  Country: JP (occurrence: None)
  Receive Date: 20131224
  Receipt Date: 20140207
  Transmission Date: 20141002
  Serious: Yes (Other)
  Sender: FDA-Public Use
  Company Number: ABR_01353_2013

PATIENT
  Age: 59 Year
  Sex: Female
  Weight: 43 kg

DRUGS (1)
  1. GLIADEL [Suspect]
     Indication: MALIGNANT GLIOMA
     Dosage: 38.5 MG, 1X, INTRACEREBRAL
     Dates: start: 20130621, end: 20130621

REACTIONS (3)
  - IIIrd nerve paresis [None]
  - Aphasia [None]
  - Cerebral vasoconstriction [None]
